FAERS Safety Report 9433840 (Version 1)
Quarter: 2013Q3

REPORT INFORMATION
  Report Type: Spontaneous
  Country: US (occurrence: US)
  Receive Date: 20130731
  Receipt Date: 20130731
  Transmission Date: 20140515
  Serious: No
  Sender: FDA-Public Use
  Company Number: US-ASTRAZENECA-2013SE49341

PATIENT
  Sex: Female

DRUGS (2)
  1. SEROQUEL [Suspect]
     Route: 048
  2. SEROQUEL [Suspect]
     Dosage: 100 MG, 25 MG IN THE MORNING, 50 MG IN THE AFTERNOON AND 25 MG AT NIGHT
     Route: 048

REACTIONS (4)
  - Headache [Unknown]
  - Dysgeusia [Unknown]
  - Parosmia [Unknown]
  - Intentional drug misuse [Unknown]
